FAERS Safety Report 19744999 (Version 1)
Quarter: 2021Q3

REPORT INFORMATION
  Report Type: Report from Study
  Country: US (occurrence: US)
  Receive Date: 20210825
  Receipt Date: 20210825
  Transmission Date: 20211014
  Serious: No
  Sender: FDA-Public Use
  Company Number: NVSC2021US189784

PATIENT
  Age: 39 Year
  Sex: Male

DRUGS (1)
  1. DIOVAN [Suspect]
     Active Substance: VALSARTAN
     Indication: IGA NEPHROPATHY
     Dosage: UNK
     Route: 048
     Dates: start: 2006, end: 2006

REACTIONS (1)
  - Lip swelling [Recovered/Resolved]
